FAERS Safety Report 9710096 (Version 2)
Quarter: 2014Q1

REPORT INFORMATION
  Report Type: Spontaneous
  Country: JP (occurrence: JP)
  Receive Date: 20131126
  Receipt Date: 20140305
  Transmission Date: 20141002
  Serious: Yes (Hospitalization, Other)
  Sender: FDA-Public Use
  Company Number: JP-SA-2013SA118706

PATIENT
  Age: 81 Year
  Sex: Male

DRUGS (2)
  1. BCG (CONNAUGHT) IT [Suspect]
     Indication: BLADDER CANCER
     Route: 065
  2. BCG VACCINE [Suspect]
     Indication: BLADDER CANCER
     Route: 065

REACTIONS (10)
  - Aortic aneurysm [Unknown]
  - Arteriovenous fistula aneurysm [Unknown]
  - Epididymitis tuberculous [Unknown]
  - Scrotal pain [Unknown]
  - Scrotal swelling [Unknown]
  - Arteriovenous graft site infection [Unknown]
  - Psoas abscess [Unknown]
  - Mycobacterial infection [Unknown]
  - Fatigue [Unknown]
  - Decreased appetite [Unknown]
